FAERS Safety Report 23858178 (Version 1)
Quarter: 2024Q2

REPORT INFORMATION
  Report Type: Spontaneous
  Country: US (occurrence: None)
  Receive Date: 20240514
  Receipt Date: 20240514
  Transmission Date: 20240716
  Serious: Yes (Hospitalization)
  Sender: FDA-Public Use
  Company Number: None

PATIENT
  Age: 74 Year
  Sex: Male

DRUGS (12)
  1. NUPLAZID [Suspect]
     Active Substance: PIMAVANSERIN TARTRATE
     Indication: Hallucination
     Dosage: 34 MG DAILY ORAL?
     Route: 048
     Dates: start: 20240411
  2. SINEMET CR [Concomitant]
     Active Substance: CARBIDOPA\LEVODOPA
  3. AMLODIPINE [Concomitant]
     Active Substance: AMLODIPINE BESYLATE
  4. ATORVASTATIN [Concomitant]
     Active Substance: ATORVASTATIN
  5. MECLIZINE [Concomitant]
     Active Substance: MECLIZINE HYDROCHLORIDE
  6. ARIPIPRAZOLE [Concomitant]
     Active Substance: ARIPIPRAZOLE
  7. GABAPENTIN [Concomitant]
     Active Substance: GABAPENTIN
  8. LISINOPRIL [Concomitant]
     Active Substance: LISINOPRIL
  9. ASPIRIN [Concomitant]
     Active Substance: ASPIRIN
  10. MEMANTINE [Concomitant]
     Active Substance: MEMANTINE
  11. LAMOTRIGINE [Concomitant]
     Active Substance: LAMOTRIGINE
  12. VITAMIN B12 [Concomitant]
     Active Substance: CYANOCOBALAMIN

REACTIONS (4)
  - Fall [None]
  - Head injury [None]
  - Urinary tract infection [None]
  - Constipation [None]

NARRATIVE: CASE EVENT DATE: 20240506
